FAERS Safety Report 6672701-6 (Version None)
Quarter: 2010Q2

REPORT INFORMATION
  Report Type: 
  Country: None (occurrence: None)
  Receive Date: 20100406
  Receipt Date: 20100223
  Transmission Date: 20101027
  Serious: Yes (Life-Threatening, Hospitalization)
  Sender: FDA-Public Use
  Company Number: 20108165

PATIENT

DRUGS (1)
  1. LIORESAL [Suspect]
     Indication: MUSCLE SPASTICITY
     Dosage: 550.6-100 MCG, DAILY, INTRATHECAL
     Route: 037

REACTIONS (10)
  - APPARENT DEATH [None]
  - COMA [None]
  - DEVICE FAILURE [None]
  - INJURY [None]
  - MEDICAL DEVICE COMPLICATION [None]
  - MUSCLE SPASTICITY [None]
  - RENAL FAILURE [None]
  - SEPSIS [None]
  - UNDERDOSE [None]
  - WITHDRAWAL SYNDROME [None]
